FAERS Safety Report 7740099-8 (Version None)
Quarter: 2011Q3

REPORT INFORMATION
  Report Type: 
  Country: None (occurrence: None)
  Receive Date: 20110909
  Receipt Date: 20110907
  Transmission Date: 20111222
  Serious: Yes (Other)
  Sender: FDA-Public Use
  Company Number: US-PFIZER INC-2011205175

PATIENT
  Sex: Female

DRUGS (10)
  1. ACETAMINOPHEN [Concomitant]
     Indication: PAIN
  2. CARBAMIDE PEROXIDE [Concomitant]
     Indication: CERUMEN IMPACTION
     Dosage: 1 DROP EACH EAR, 3X/DAY
     Route: 001
  3. CLONAZEPAM [Concomitant]
     Dosage: 0.25 MG
     Route: 048
  4. ACETAMINOPHEN [Concomitant]
     Indication: BODY TEMPERATURE INCREASED
     Dosage: 325 MG, (EVERY 4 HOURS) AS NEEDED
     Route: 048
  5. ACETAMINOPHEN [Concomitant]
  6. DILANTIN [Suspect]
     Dosage: 75 MG, 2X/DAY
     Route: 048
     Dates: start: 20031227
  7. CALCIUM CITRATE [Concomitant]
     Indication: MINERAL SUPPLEMENTATION
     Dosage: 950 MG, 2X/DAY
     Route: 048
  8. CLONAZEPAM [Concomitant]
     Indication: CONVULSION
     Dosage: 0.5 MG
     Route: 048
  9. ACETAMINOPHEN [Concomitant]
     Dosage: 325 MG, AS NEEDED
     Route: 054
  10. DILANTIN [Suspect]
     Indication: CONVULSION
     Dosage: 50 MG
     Route: 048

REACTIONS (2)
  - CONVULSION [None]
  - SCOLIOSIS [None]
